FAERS Safety Report 9235166 (Version 1)
Quarter: 2013Q2

REPORT INFORMATION
  Report Type: Spontaneous
  Country: US (occurrence: US)
  Receive Date: 20130417
  Receipt Date: 20130417
  Transmission Date: 20140414
  Serious: Yes (Other)
  Sender: FDA-Public Use
  Company Number: 2013SP003457

PATIENT
  Age: 14 Year
  Sex: Male

DRUGS (8)
  1. VANCOMYCIN [Suspect]
     Indication: PRODUCT USED FOR UNKNOWN INDICATION
  2. RIFAMPICIN [Suspect]
     Indication: LATENT TUBERCULOSIS
  3. TACROLIMUS [Suspect]
     Indication: IMMUNOSUPPRESSION
  4. TACROLIMUS [Suspect]
     Indication: IMMUNOSUPPRESSION
  5. MYCOPHENOLATE MOFETIL [Concomitant]
     Indication: IMMUNOSUPPRESSION
  6. METHYLPREDNISOLONE [Concomitant]
     Indication: IMMUNOSUPPRESSION
  7. METHYLPREDNISOLONE [Concomitant]
     Indication: IMMUNOSUPPRESSION
  8. KETOCONAZOLE [Concomitant]
     Indication: PRODUCT USED FOR UNKNOWN INDICATION

REACTIONS (13)
  - Toxicity to various agents [Unknown]
  - Renal tubular necrosis [Unknown]
  - Renal failure acute [Unknown]
  - Hyperkalaemia [Unknown]
  - Blood creatinine increased [Unknown]
  - Drug interaction [Unknown]
  - Electrocardiogram QT prolonged [Unknown]
  - Drug level below therapeutic [Recovering/Resolving]
  - Pneumonia [Recovered/Resolved]
  - Leukocytosis [Unknown]
  - Lung consolidation [Recovered/Resolved]
  - Pyrexia [Recovered/Resolved]
  - Pleural effusion [Unknown]
